FAERS Safety Report 7831833-7 (Version None)
Quarter: 2011Q4

REPORT INFORMATION
  Report Type: 
  Country: None (occurrence: None)
  Receive Date: 20111021
  Receipt Date: 20111013
  Transmission Date: 20120403
  Serious: Yes (Hospitalization, Other)
  Sender: FDA-Public Use
  Company Number: US-CELGENEUS-163-21880-11071335

PATIENT
  Sex: Male
  Weight: 67.1 kg

DRUGS (19)
  1. ALPRAZOLAM [Concomitant]
     Dosage: .5 MILLIGRAM
     Route: 048
  2. MIDODRINE HYDROCHLORIDE [Concomitant]
     Dosage: 10 MILLIGRAM
     Route: 048
  3. ASPIRIN [Concomitant]
     Dosage: 325 MILLIGRAM
     Route: 048
  4. DEXAMETHASONE [Concomitant]
     Dosage: 4 MILLIGRAM
     Route: 048
  5. MORPHINE [Concomitant]
     Dosage: 15 MILLIGRAM
     Route: 048
  6. ONGLYZA [Concomitant]
     Dosage: 2.5 MILLIGRAM
     Route: 048
  7. MULTIVITAMIN WITH IRON [Concomitant]
     Route: 048
  8. NEXIUM [Concomitant]
     Dosage: 40 MILLIGRAM
     Route: 048
  9. ACETAMINOPHEN AND HYDROCODONE BITARTRATE [Concomitant]
     Dosage: 5MG-500MG
     Route: 048
  10. POTASSIUM CHLORIDE [Concomitant]
     Dosage: 8 MILLIEQUIVALENTS
     Route: 048
  11. VITAMIN D [Concomitant]
     Dosage: 1000 UNIT
  12. METOPROLOL TARTRATE [Concomitant]
     Dosage: 25 MILLIGRAM
     Route: 048
  13. BENEFIBER [Concomitant]
     Dosage: 1 GRAM
     Route: 048
  14. CALCIUM 500 + D [Concomitant]
     Dosage: 1,250MG 200 UNIT
     Route: 048
  15. LEXAPRO [Concomitant]
     Dosage: 20 MILLIGRAM
     Route: 048
  16. MAGNESIUM [Concomitant]
     Dosage: 100 MILLIGRAM
     Route: 048
  17. ONDANSETRON [Concomitant]
     Dosage: 8 MILLIGRAM
     Route: 048
  18. REVLIMID [Suspect]
     Indication: MULTIPLE MYELOMA
     Dosage: 25 MILLIGRAM
     Route: 048
     Dates: start: 20110401
  19. AREDIA [Concomitant]
     Route: 065
     Dates: start: 20110419

REACTIONS (2)
  - CHOLELITHIASIS OBSTRUCTIVE [None]
  - CYSTITIS [None]
